FAERS Safety Report 9466302 (Version 1)
Quarter: 2013Q3

REPORT INFORMATION
  Report Type: Report from Study
  Country: JP (occurrence: JP)
  Receive Date: 20130820
  Receipt Date: 20130820
  Transmission Date: 20140515
  Serious: Yes (Other)
  Sender: FDA-Public Use
  Company Number: JP-GENZYME-THYM-1003964

PATIENT
  Age: 5 Year
  Sex: Male
  Weight: 17 kg

DRUGS (5)
  1. THYMOGLOBULIN [Suspect]
     Indication: APLASTIC ANAEMIA
     Dosage: 60 MG, QD
     Route: 065
     Dates: start: 20120614, end: 20120618
  2. THYMOGLOBULIN [Suspect]
  3. VANCOMYCIN [Suspect]
     Indication: DEVICE RELATED SEPSIS
     Dosage: UNK
     Route: 065
     Dates: start: 20120820, end: 20120831
  4. SOLU-MEDROL [Concomitant]
     Indication: PROPHYLAXIS
     Dosage: UNK
     Route: 065
     Dates: start: 20120614
  5. POLARAMINE [Concomitant]
     Indication: PROPHYLAXIS
     Dosage: UNK
     Route: 065
     Dates: start: 20120615, end: 20120618

REACTIONS (5)
  - Erythema [Recovered/Resolved]
  - Renal impairment [Recovered/Resolved]
  - Device related sepsis [Unknown]
  - Pyrexia [Recovered/Resolved]
  - Pyrexia [Recovered/Resolved]
